FAERS Safety Report 6904345-2 (Version None)
Quarter: 2010Q3

REPORT INFORMATION
  Report Type: 
  Country: None (occurrence: None)
  Receive Date: 20100804
  Receipt Date: 20090428
  Transmission Date: 20110219
  Serious: No
  Sender: FDA-Public Use
  Company Number: US-PFIZER INC-2009205488

PATIENT
  Sex: Female
  Weight: 98.866 kg

DRUGS (4)
  1. LYRICA [Suspect]
     Indication: NERVE INJURY
     Dosage: 75 MG, 2X/DAY
     Dates: start: 20090301
  2. LYRICA [Suspect]
     Indication: PAIN
  3. LYRICA [Suspect]
     Indication: GAIT DISTURBANCE
  4. SYMBICORT [Concomitant]
     Dosage: UNK
     Dates: start: 20060101

REACTIONS (8)
  - AMNESIA [None]
  - DRY MOUTH [None]
  - FATIGUE [None]
  - INCREASED APPETITE [None]
  - SOMNOLENCE [None]
  - VISION BLURRED [None]
  - VISUAL IMPAIRMENT [None]
  - WEIGHT INCREASED [None]
